FAERS Safety Report 23751422 (Version 3)
Quarter: 2024Q2

REPORT INFORMATION
  Report Type: Report from Study
  Country: US (occurrence: US)
  Receive Date: 20240417
  Receipt Date: 20240430
  Transmission Date: 20240716
  Serious: Yes (Death, Hospitalization, Other)
  Sender: FDA-Public Use
  Company Number: US-002147023-NVSC2024US080073

PATIENT
  Age: 53 Year
  Sex: Female
  Weight: 80.7 kg

DRUGS (14)
  1. KISQALI [Suspect]
     Active Substance: RIBOCICLIB
     Indication: Breast cancer metastatic
     Dosage: 200 MG/KG, OTHER, VERY 21 DAYS THEN 7 DAYS OFF
     Route: 048
  2. KISQALI [Suspect]
     Active Substance: RIBOCICLIB
     Dosage: 600 MG (200 MG X 3), QD, IN THE MORNING FOR 21 DAYS ON AND 7 DAYS OFF CYCLE
     Route: 048
     Dates: start: 20240311, end: 20240318
  3. KISQALI [Suspect]
     Active Substance: RIBOCICLIB
     Dosage: 400 MG (200 MG X 2), QD, IN THE MORNING FOR 21 DAYS ON AND 7 DAYS OFF CYCLE
     Route: 048
     Dates: start: 20240311, end: 20240320
  4. LETROZOLE [Suspect]
     Active Substance: LETROZOLE
     Indication: Product used for unknown indication
     Dosage: 1 DOSAGE FORM, QD, IN THE MORNING
     Route: 048
     Dates: start: 20240318
  5. DECADRON [Concomitant]
     Active Substance: DEXAMETHASONE
     Indication: Product used for unknown indication
     Dosage: 2 DOSAGE FORM (6MG), QD, 1 IN MORNING AND 1 IN EVENING
     Route: 048
     Dates: start: 20240317, end: 20240324
  6. DECADRON [Concomitant]
     Active Substance: DEXAMETHASONE
     Dosage: 2 DOSAGE FORM (4 MG), QD, 1 IN MORNING AND 1 IN EVENING
     Route: 048
     Dates: start: 20240325
  7. LOMOTIL [Concomitant]
     Active Substance: ATROPINE SULFATE\DIPHENOXYLATE HYDROCHLORIDE
     Indication: Diarrhoea
     Dosage: 1 DOSAGE FORM, AFTER EACH LOOSE STOOL. MAX 8 PER DAY
     Route: 048
     Dates: start: 20240318
  8. NEURONTIN [Concomitant]
     Active Substance: GABAPENTIN
     Indication: Neuralgia
     Dosage: 2 DOSAGE FORM
     Route: 048
     Dates: start: 20240222, end: 20240323
  9. NORCO [Concomitant]
     Active Substance: ACETAMINOPHEN\HYDROCODONE BITARTRATE
     Indication: Cancer pain
     Dosage: 1 DOSAGE FORM, Q4H, FOR UP TO 14 DAYS
     Route: 048
     Dates: start: 20240315
  10. MAGNESIUM OXIDE [Concomitant]
     Active Substance: MAGNESIUM OXIDE
     Indication: Product used for unknown indication
     Dosage: 2 DOSAGE FORM, QD, 1 IN THE MORNING AND 1 IN THE EVENING
     Route: 048
     Dates: start: 20240308
  11. MS CONTIN [Concomitant]
     Active Substance: MORPHINE SULFATE
     Indication: Cancer pain
     Dosage: 2 DOSAGE FORM, QD, 1 IN MORNING AND 1 IN EVENING
     Route: 048
     Dates: start: 20240226
  12. COMPAZINE [Concomitant]
     Active Substance: PROCHLORPERAZINE MALEATE
     Indication: Vomiting
     Dosage: 1 DOSAGE FORM, Q6H
     Route: 048
     Dates: start: 20240226
  13. XARELTO [Concomitant]
     Active Substance: RIVAROXABAN
     Indication: Product used for unknown indication
     Dosage: 1 DOSAGE FORM, QD, WITH DINNER
     Route: 048
     Dates: start: 20240308
  14. ONDANSETRON [Concomitant]
     Active Substance: ONDANSETRON
     Indication: Product used for unknown indication
     Dosage: UNK
     Route: 065

REACTIONS (7)
  - Death [Fatal]
  - Pancytopenia [Unknown]
  - Metastases to bone marrow [Unknown]
  - Haematochezia [Unknown]
  - Toxicity to various agents [Unknown]
  - Hypotension [Unknown]
  - Tachycardia [Unknown]

NARRATIVE: CASE EVENT DATE: 20240327
